FAERS Safety Report 18942411 (Version 1)
Quarter: 2021Q1

REPORT INFORMATION
  Report Type: Spontaneous
  Country: FR (occurrence: FR)
  Receive Date: 20210225
  Receipt Date: 20210225
  Transmission Date: 20210420
  Serious: Yes (Hospitalization)
  Sender: FDA-Public Use
  Company Number: FR-PFIZER INC-2021151192

PATIENT
  Age: 50 Year
  Sex: Female
  Weight: 75 kg

DRUGS (5)
  1. CODOLIPRANE [Concomitant]
     Active Substance: ACETAMINOPHEN\CODEINE PHOSPHATE
     Indication: SCIATICA
     Dosage: 6 DF, 1X/DAY
     Route: 048
     Dates: start: 20210120
  2. METHYLPREDNISOLONE. [Concomitant]
     Active Substance: METHYLPREDNISOLONE
     Dosage: 16MG X2/DAY FOR 2 DAYS
     Route: 048
  3. METHYLPREDNISOLONE. [Concomitant]
     Active Substance: METHYLPREDNISOLONE
     Dosage: 16 MG X4/DAY FOR 4 DAYS
     Route: 048
     Dates: start: 20210120
  4. PREGABALIN. [Suspect]
     Active Substance: PREGABALIN
     Indication: SCIATICA
     Dosage: 600 MG, DAILY
     Route: 048
     Dates: start: 20210120, end: 20210120
  5. METHYLPREDNISOLONE. [Concomitant]
     Active Substance: METHYLPREDNISOLONE
     Dosage: 16 MG X3/DAY FOR 3 DAYS
     Route: 048

REACTIONS (4)
  - Balance disorder [Recovered/Resolved]
  - Psychomotor skills impaired [Recovered/Resolved]
  - Hallucination [Recovered/Resolved]
  - Euphoric mood [Recovered/Resolved]

NARRATIVE: CASE EVENT DATE: 20210120
